FAERS Safety Report 24392752 (Version 1)
Quarter: 2024Q4

REPORT INFORMATION
  Report Type: Spontaneous
  Country: US (occurrence: None)
  Receive Date: 20241002
  Receipt Date: 20241002
  Transmission Date: 20250115
  Serious: Yes (Death, Hospitalization)
  Sender: Public
  Company Number: None

PATIENT
  Sex: Female
  Weight: 67.5 kg

DRUGS (2)
  1. SIMPONI ARIA [Suspect]
     Active Substance: GOLIMUMAB
     Indication: Rheumatoid arthritis
  2. LYRICA [Suspect]
     Active Substance: PREGABALIN

REACTIONS (7)
  - Dyspnoea [None]
  - Rash [None]
  - Cardiac disorder [None]
  - Malaise [None]
  - Mental disorder [None]
  - Product prescribing issue [None]
  - Sudden death [None]
